FAERS Safety Report 20911860 (Version 1)
Quarter: 2022Q2

REPORT INFORMATION
  Report Type: Spontaneous
  Country: US (occurrence: None)
  Receive Date: 20220603
  Receipt Date: 20220603
  Transmission Date: 20220721
  Serious: No
  Sender: FDA-Public Use
  Company Number: None

PATIENT
  Age: 73 Year
  Sex: Female
  Weight: 64.35 kg

DRUGS (11)
  1. PAXLOVID [Suspect]
     Active Substance: NIRMATRELVIR\RITONAVIR
     Indication: COVID-19
     Dosage: OTHER QUANTITY : 3 CAPSULE(S);?FREQUENCY : TWICE A DAY;?
     Route: 048
     Dates: start: 20220517, end: 20220522
  2. Breo Ellipse [Concomitant]
  3. AZELASTINE [Concomitant]
     Active Substance: AZELASTINE
  4. MUCINEX [Concomitant]
     Active Substance: GUAIFENESIN
  5. NASACORT [Concomitant]
     Active Substance: TRIAMCINOLONE ACETONIDE
  6. MINERALS\VITAMINS [Concomitant]
     Active Substance: MINERALS\VITAMINS
  7. Calcium/mg/zinc [Concomitant]
  8. VITAMIN B12 [Concomitant]
     Active Substance: CYANOCOBALAMIN
  9. VITAMIN D3 [Concomitant]
     Active Substance: CHOLECALCIFEROL
  10. Turmeric/cur [Concomitant]
  11. CUMIN [Concomitant]
     Active Substance: CUMIN

REACTIONS (2)
  - COVID-19 [None]
  - Therapeutic product effect incomplete [None]

NARRATIVE: CASE EVENT DATE: 20220528
